FAERS Safety Report 7157437-X (Version None)
Quarter: 2010Q4

REPORT INFORMATION
  Report Type: 
  Country: None (occurrence: None)
  Receive Date: 20101214
  Receipt Date: 20101208
  Transmission Date: 20110411
  Serious: Yes (Other)
  Sender: FDA-Public Use
  Company Number: A0897408A

PATIENT
  Age: 49 Year
  Sex: Male

DRUGS (5)
  1. SELZENTRY [Suspect]
     Indication: HIV INFECTION
     Dosage: 300MG TWICE PER DAY
     Route: 048
     Dates: start: 20040101, end: 20101111
  2. VIREAD [Concomitant]
  3. EPIVIR [Concomitant]
  4. INTELENCE [Concomitant]
  5. ISENTRESS [Concomitant]

REACTIONS (4)
  - BLISTER [None]
  - RASH [None]
  - SWELLING [None]
  - URTICARIA [None]
